FAERS Safety Report 24031191 (Version 1)
Quarter: 2024Q2

REPORT INFORMATION
  Report Type: Report from Study
  Country: US (occurrence: US)
  Receive Date: 20240629
  Receipt Date: 20240629
  Transmission Date: 20240716
  Serious: Yes (Other)
  Sender: FDA-Public Use
  Company Number: US-ABBVIE-5657959

PATIENT
  Sex: Male

DRUGS (1)
  1. RINVOQ [Suspect]
     Active Substance: UPADACITINIB
     Indication: Psoriatic arthropathy
     Route: 048
     Dates: start: 20231020

REACTIONS (35)
  - Musculoskeletal stiffness [Unknown]
  - Inflammation [Unknown]
  - Fall [Unknown]
  - Hepatic enzyme increased [Unknown]
  - Eye colour change [Unknown]
  - Muscle strain [Unknown]
  - Dry skin [Unknown]
  - Erythema [Unknown]
  - Blood cholesterol increased [Unknown]
  - Inflammation [Unknown]
  - Headache [Unknown]
  - Osteoarthritis [Unknown]
  - Scoliosis [Unknown]
  - Abdominal pain [Unknown]
  - Vision blurred [Unknown]
  - Eye inflammation [Unknown]
  - Pain in jaw [Unknown]
  - Dry eye [Unknown]
  - Blood glucose increased [Unknown]
  - Intervertebral disc protrusion [Unknown]
  - Hypoaesthesia [Unknown]
  - Sciatica [Unknown]
  - Pain in extremity [Unknown]
  - Back pain [Unknown]
  - Dizziness [Unknown]
  - Burning sensation [Unknown]
  - Hypoaesthesia [Unknown]
  - Spinal pain [Unknown]
  - Hepatitis [Unknown]
  - Arthralgia [Unknown]
  - Chest pain [Unknown]
  - Chest discomfort [Unknown]
  - Limb discomfort [Unknown]
  - Gastrointestinal pain [Unknown]
  - Balance disorder [Unknown]

NARRATIVE: CASE EVENT DATE: 20240101
